FAERS Safety Report 5662366-4 (Version None)
Quarter: 2008Q1

REPORT INFORMATION
  Report Type: 
  Country: None (occurrence: None)
  Receive Date: 20080313
  Receipt Date: 20080229
  Transmission Date: 20080703
  Serious: Yes (Other)
  Sender: FDA-Public Use
  Company Number: US-RANBAXY-2008RR-13445

PATIENT

DRUGS (2)
  1. LISINOPRIL [Suspect]
     Dosage: 30 MG, QD
     Route: 048
  2. IRBESARTAN [Suspect]
     Dosage: 75 MG, QD
     Route: 048

REACTIONS (1)
  - PENILE OEDEMA [None]
